FAERS Safety Report 19799084 (Version 1)
Quarter: 2021Q3

REPORT INFORMATION
  Report Type: Spontaneous
  Country: US (occurrence: US)
  Receive Date: 20210907
  Receipt Date: 20210907
  Transmission Date: 20211014
  Serious: Yes (Other)
  Sender: FDA-Public Use
  Company Number: None

PATIENT
  Age: 41 Year
  Sex: Female

DRUGS (1)
  1. REGEN?COV [Suspect]
     Active Substance: CASIRIVIMAB\IMDEVIMAB
     Indication: COVID-19
     Route: 058
     Dates: start: 20210906, end: 20210906

REACTIONS (10)
  - Fatigue [None]
  - Maternal exposure during pregnancy [None]
  - Nausea [None]
  - Muscle twitching [None]
  - Lethargy [None]
  - Dizziness [None]
  - Feeling hot [None]
  - Feeling abnormal [None]
  - Hypoaesthesia [None]
  - Pain in extremity [None]

NARRATIVE: CASE EVENT DATE: 20210906
